FAERS Safety Report 18619871 (Version 3)
Quarter: 2021Q1

REPORT INFORMATION
  Report Type: Spontaneous
  Country: ES (occurrence: ES)
  Receive Date: 20201215
  Receipt Date: 20210203
  Transmission Date: 20210419
  Serious: Yes (Life-Threatening, Hospitalization, Other)
  Sender: FDA-Public Use
  Company Number: ES-PFIZER INC-2020491192

PATIENT
  Age: 59 Year
  Sex: Female

DRUGS (4)
  1. LORAZEPAM. [Suspect]
     Active Substance: LORAZEPAM
     Dosage: 6 MG, SINGLE
     Route: 048
     Dates: start: 20201120, end: 20201120
  2. BROMAZEPAM [Interacting]
     Active Substance: BROMAZEPAM
     Dosage: 31.5 MG, SINGLE
     Route: 048
     Dates: start: 20201120, end: 20201120
  3. VENLAFAXINE HCL [Interacting]
     Active Substance: VENLAFAXINE HYDROCHLORIDE
     Dosage: 1350 MG, SINGLE
     Route: 048
     Dates: start: 20201120, end: 20201120
  4. PERMIXON [Interacting]
     Active Substance: HERBALS\SAW PALMETTO
     Dosage: 1760 MG, SINGLE (11 TABLETS OF PERMIXON)
     Route: 048
     Dates: start: 20201120, end: 20201120

REACTIONS (6)
  - Overdose [Unknown]
  - Muscle rigidity [Recovered/Resolved]
  - Drug interaction [Unknown]
  - Coma [Recovered/Resolved]
  - Suicide attempt [Recovered/Resolved]
  - Tonic convulsion [Recovered/Resolved]

NARRATIVE: CASE EVENT DATE: 20201120
